FAERS Safety Report 8251336-8 (Version None)
Quarter: 2012Q2

REPORT INFORMATION
  Report Type: 
  Country: None (occurrence: None)
  Receive Date: 20120402
  Receipt Date: 20120322
  Transmission Date: 20120825
  Serious: Yes (Other)
  Sender: FDA-Public Use
  Company Number: BR-GLAXOSMITHKLINE-A0971663A

PATIENT
  Sex: Female

DRUGS (1)
  1. ZOFRAN [Suspect]
     Indication: THERAPEUTIC PROCEDURE
     Dosage: 2MG SEE DOSAGE TEXT
     Route: 042
     Dates: start: 20120307

REACTIONS (1)
  - CYANOSIS [None]
